FAERS Safety Report 9799769 (Version 2)
Quarter: 2014Q1

REPORT INFORMATION
  Report Type: Spontaneous
  Country: US (occurrence: US)
  Receive Date: 20140106
  Receipt Date: 20140106
  Transmission Date: 20141002
  Serious: No
  Sender: FDA-Public Use
  Company Number: US-GILEAD-2010-0031642

PATIENT
  Age: 76 Year
  Sex: Female
  Weight: 57.15 kg

DRUGS (18)
  1. LETAIRIS [Suspect]
     Indication: PULMONARY ARTERIAL HYPERTENSION
     Route: 048
     Dates: start: 20100415
  2. NORVASC [Concomitant]
  3. PRAVACHOL [Concomitant]
  4. FUROSEMIDE [Concomitant]
  5. CHOLESTYRAMINE [Concomitant]
  6. BENICAR [Concomitant]
  7. QUESTRAN POWDER [Concomitant]
  8. PREDNISONE [Concomitant]
  9. IMODIUM [Concomitant]
  10. NEXIUM [Concomitant]
  11. SYNTHROID [Concomitant]
  12. PARAGORIC LIQUID [Concomitant]
  13. ULTRAM [Concomitant]
  14. ESTRADERM PATCH [Concomitant]
  15. XALATAN [Concomitant]
  16. VIAMIN B COMPLEX/C [Concomitant]
  17. CALTRATE 600 [Concomitant]
  18. VITAMIN D [Concomitant]

REACTIONS (1)
  - Local swelling [Unknown]
